FAERS Safety Report 6337109-1 (Version None)
Quarter: 2009Q3

REPORT INFORMATION
  Report Type: 
  Country: None (occurrence: None)
  Receive Date: 20090831
  Receipt Date: 20090824
  Transmission Date: 20100115
  Serious: Yes (Other)
  Sender: FDA-Public Use
  Company Number: 2009US003231

PATIENT
  Sex: Female

DRUGS (2)
  1. VESICARE [Suspect]
     Indication: DRUG USE FOR UNKNOWN INDICATION
     Dosage: 5 MG, ORAL, 10 MG, ORAL
     Route: 048
     Dates: end: 20080901
  2. VESICARE [Suspect]
     Indication: DRUG USE FOR UNKNOWN INDICATION
     Dosage: 5 MG, ORAL, 10 MG, ORAL
     Route: 048
     Dates: start: 20080901

REACTIONS (2)
  - BREAST CANCER FEMALE [None]
  - DRUG INEFFECTIVE [None]
